FAERS Safety Report 25254677 (Version 1)
Quarter: 2025Q2

REPORT INFORMATION
  Report Type: Spontaneous
  Country: US (occurrence: None)
  Receive Date: 20250429
  Receipt Date: 20250429
  Transmission Date: 20250716
  Serious: No
  Sender: FDA-CTU
  Company Number: None

PATIENT
  Age: 7 Year
  Sex: Female

DRUGS (13)
  1. PULMOZYME [Suspect]
     Active Substance: DORNASE ALFA
     Indication: Cystic fibrosis
     Dosage: FREQUENCY : DAILY;?
     Route: 048
     Dates: start: 202401
  2. PERTZYE [Concomitant]
     Active Substance: PANCRELIPASE AMYLASE\PANCRELIPASE LIPASE\PANCRELIPASE PROTEASE
  3. SYMBICORT [Concomitant]
     Active Substance: BUDESONIDE\FORMOTEROL FUMARATE DIHYDRATE
  4. FLUTICASONE [Concomitant]
     Active Substance: FLUTICASONE
  5. SODIUM CHLORIDE [Concomitant]
     Active Substance: SODIUM CHLORIDE
  6. SENNA [Concomitant]
     Active Substance: SENNOSIDES
  7. POL VETH GL YC 3350 [Concomitant]
  8. ALBUTEROL [Concomitant]
     Active Substance: ALBUTEROL
  9. NEXIUM [Concomitant]
     Active Substance: ESOMEPRAZOLE MAGNESIUM
  10. CYPROHEPTADINE [Concomitant]
     Active Substance: CYPROHEPTADINE
  11. PULMOZYME [Concomitant]
     Active Substance: DORNASE ALFA
  12. CETIRIZINE [Concomitant]
     Active Substance: CETIRIZINE HYDROCHLORIDE
  13. VENTOLIN HFA [Concomitant]
     Active Substance: ALBUTEROL SULFATE

REACTIONS (1)
  - Gastrointestinal tube insertion [None]

NARRATIVE: CASE EVENT DATE: 20250401
